FAERS Safety Report 4821715-7 (Version None)
Quarter: 2005Q4

REPORT INFORMATION
  Report Type: 
  Country: None (occurrence: None)
  Receive Date: 20051104
  Receipt Date: 20051104
  Transmission Date: 20060501
  Serious: Yes (Hospitalization, Other)
  Sender: FDA-Public Use
  Company Number: None

PATIENT
  Sex: Male

DRUGS (1)
  1. BACTRIM DS [Suspect]
     Indication: NECROTISING FASCIITIS
     Dosage: 1 DS BID PO
     Route: 048
     Dates: start: 20050501, end: 20050503

REACTIONS (1)
  - NEPHRITIS INTERSTITIAL [None]
